FAERS Safety Report 6102263-3 (Version None)
Quarter: 2009Q1

REPORT INFORMATION
  Report Type: 
  Country: None (occurrence: None)
  Receive Date: 20090227
  Receipt Date: 20080209
  Transmission Date: 20090719
  Serious: Yes (Other)
  Sender: FDA-Public Use
  Company Number: 546486

PATIENT
  Age: 17 Year
  Sex: Male
  Weight: 56.7 kg

DRUGS (1)
  1. ACCUTANE [Suspect]
     Indication: ACNE
     Dosage: 80 MG ORAL
     Route: 048
     Dates: start: 20080101

REACTIONS (2)
  - COLITIS ULCERATIVE [None]
  - LIVER FUNCTION TEST ABNORMAL [None]
